FAERS Safety Report 17556562 (Version 1)
Quarter: 2020Q1

REPORT INFORMATION
  Report Type: Spontaneous
  Country: US (occurrence: US)
  Receive Date: 20200318
  Receipt Date: 20200318
  Transmission Date: 20200409
  Serious: Yes (Other)
  Sender: FDA-Public Use
  Company Number: US-PFIZER INC-2020115201

PATIENT
  Age: 64 Year
  Sex: Male
  Weight: 139 kg

DRUGS (1)
  1. CELECOXIB. [Suspect]
     Active Substance: CELECOXIB
     Indication: ARTHRITIS
     Dosage: 200 MG, 1X/DAY
     Route: 048

REACTIONS (3)
  - Rectal haemorrhage [Unknown]
  - Dyslexia [Unknown]
  - Fatigue [Unknown]

NARRATIVE: CASE EVENT DATE: 201911
